FAERS Safety Report 4276566-1 (Version None)
Quarter: 2004Q1

REPORT INFORMATION
  Report Type: 
  Country: None (occurrence: None)
  Receive Date: 20040120
  Receipt Date: 20040113
  Transmission Date: 20041129
  Serious: Yes (Hospitalization, Other)
  Sender: FDA-Public Use
  Company Number: 2003192169US

PATIENT
  Age: 69 Year
  Sex: Male
  Weight: 79.8 kg

DRUGS (3)
  1. BEXTRA [Suspect]
     Indication: ARTHRITIS
     Dosage: 10 MG, QD, ORAL
     Route: 048
     Dates: start: 20030820, end: 20031023
  2. NORVASC [Concomitant]
  3. PREVACID [Concomitant]

REACTIONS (24)
  - ARTHRALGIA [None]
  - ATAXIA [None]
  - BALANCE DISORDER [None]
  - DYSARTHRIA [None]
  - FEELING ABNORMAL [None]
  - FEELING COLD [None]
  - HAEMODIALYSIS [None]
  - HEPATIC FAILURE [None]
  - HYPERGLYCAEMIA [None]
  - HYPERTENSION [None]
  - IMPAIRED DRIVING ABILITY [None]
  - INFLUENZA LIKE ILLNESS [None]
  - LIPASE INCREASED [None]
  - MUSCULAR WEAKNESS [None]
  - NAIL DISCOLOURATION [None]
  - NEPHRITIS INTERSTITIAL [None]
  - NERVOUSNESS [None]
  - PERIPHERAL COLDNESS [None]
  - PNEUMOTHORAX [None]
  - POLLAKIURIA [None]
  - PROCEDURAL COMPLICATION [None]
  - PYREXIA [None]
  - RENAL FAILURE ACUTE [None]
  - WHITE BLOOD CELL COUNT INCREASED [None]
